FAERS Safety Report 21808928 (Version 3)
Quarter: 2024Q2

REPORT INFORMATION
  Report Type: Spontaneous
  Country: CN (occurrence: CN)
  Receive Date: 20230103
  Receipt Date: 20240622
  Transmission Date: 20240716
  Serious: Yes (Other)
  Sender: FDA-Public Use
  Company Number: CN-ABBVIE-4253098

PATIENT
  Age: 61 Year
  Sex: Male

DRUGS (8)
  1. VENCLEXTA [Suspect]
     Active Substance: VENETOCLAX
     Indication: Myelodysplastic syndrome
     Dosage: DAY 1
     Route: 048
     Dates: start: 20210509, end: 20210509
  2. VENCLEXTA [Suspect]
     Active Substance: VENETOCLAX
     Indication: Myelodysplastic syndrome
     Dosage: DAY 2
     Route: 048
     Dates: start: 20210510, end: 20210510
  3. VENCLEXTA [Suspect]
     Active Substance: VENETOCLAX
     Indication: Myelodysplastic syndrome
     Dosage: DAY 3 TO DAY 15
     Route: 048
     Dates: start: 20210511, end: 20210523
  4. VENCLEXTA [Suspect]
     Active Substance: VENETOCLAX
     Indication: Myelodysplastic syndrome
     Dosage: DAY 16 TO DAY 28
     Route: 048
     Dates: start: 20210524
  5. AZACITIDINE [Concomitant]
     Active Substance: AZACITIDINE
     Indication: Myelodysplastic syndrome
     Route: 065
     Dates: start: 20210509
  6. AZACITIDINE [Concomitant]
     Active Substance: AZACITIDINE
     Indication: Myelodysplastic syndrome
     Route: 065
     Dates: start: 20201222, end: 20201228
  7. AZACITIDINE [Concomitant]
     Active Substance: AZACITIDINE
     Indication: Myelodysplastic syndrome
     Route: 065
     Dates: start: 20210131, end: 20210206
  8. AZACITIDINE [Concomitant]
     Active Substance: AZACITIDINE
     Indication: Myelodysplastic syndrome
     Route: 065
     Dates: start: 20210309, end: 20210315

REACTIONS (3)
  - Agranulocytosis [Recovering/Resolving]
  - Infection [Recovering/Resolving]
  - Off label use [Unknown]

NARRATIVE: CASE EVENT DATE: 20210509
